FAERS Safety Report 25971446 (Version 3)
Quarter: 2025Q4

REPORT INFORMATION
  Report Type: Report from Study
  Country: US (occurrence: US)
  Receive Date: 20251028
  Receipt Date: 20251120
  Transmission Date: 20260119
  Serious: Yes (Death, Hospitalization, Other)
  Sender: AMNEAL
  Company Number: US-AMNEAL PHARMACEUTICALS-2025-AMRX-04106

PATIENT
  Sex: Male

DRUGS (1)
  1. RELEUKO [Suspect]
     Active Substance: FILGRASTIM-AYOW
     Indication: Chemotherapy
     Dosage: (480MCG/0.8 ML PREFILLE SYRINGE) INJECT 480MCG SUBCUTANEOUSLY ONCE DAILY FOR 3 DAYS OF A 14 DAY CYCL
     Route: 058

REACTIONS (3)
  - Death [Fatal]
  - Spinal fracture [Unknown]
  - Fall [Unknown]

NARRATIVE: CASE EVENT DATE: 20250101
